FAERS Safety Report 5272736-4 (Version None)
Quarter: 2007Q1

REPORT INFORMATION
  Report Type: 
  Country: None (occurrence: None)
  Receive Date: 20070322
  Receipt Date: 20070321
  Transmission Date: 20070707
  Serious: Yes (Hospitalization)
  Sender: FDA-Public Use
  Company Number: US-GLAXOSMITHKLINE-A0625184A

PATIENT
  Age: 56 Year
  Sex: Female

DRUGS (13)
  1. WELLBUTRIN XL [Suspect]
     Indication: DEPRESSION
     Dosage: 150MG PER DAY
     Route: 048
     Dates: start: 20060101, end: 20061026
  2. PAXIL [Concomitant]
  3. CARAFATE [Concomitant]
  4. PRILOSEC [Concomitant]
  5. XANAX [Concomitant]
  6. VITAMIN B-12 [Concomitant]
  7. ASCORBIC ACID [Concomitant]
  8. VITAMIN E [Concomitant]
  9. MULTI-VITAMIN [Concomitant]
  10. CHANTIX [Concomitant]
  11. FLEX-A-MIN [Concomitant]
  12. PAREGORIC [Concomitant]
  13. UNSPECIFIED MEDICATION [Concomitant]

REACTIONS (6)
  - AGGRESSION [None]
  - ANGER [None]
  - BIPOLAR DISORDER [None]
  - MOOD SWINGS [None]
  - OBSESSIVE-COMPULSIVE DISORDER [None]
  - SUICIDAL IDEATION [None]
